FAERS Safety Report 10741245 (Version 3)
Quarter: 2015Q1

REPORT INFORMATION
  Report Type: Spontaneous
  Country: US (occurrence: None)
  Receive Date: 20150123
  Receipt Date: 20150309
  Transmission Date: 20150721
  Serious: Yes (Hospitalization)
  Sender: FDA-Public Use
  Company Number: CIO15002194

PATIENT
  Sex: Female

DRUGS (2)
  1. ACESULFAME POTASSIUM [Suspect]
     Active Substance: ACESULFAME POTASSIUM
  2. METAMUCIL THERAPY FOR REGULARITY [Suspect]
     Active Substance: PSYLLIUM HUSK
     Dosage: ONCE IN THE EVENING FOR A COUPLE OF WEEKS
     Route: 048
     Dates: start: 2013

REACTIONS (7)
  - Electrolyte imbalance [None]
  - Dehydration [None]
  - Reaction to drug excipients [None]
  - Diarrhoea [None]
  - Documented hypersensitivity to administered product [None]
  - Malaise [None]
  - Gastrointestinal pain [None]

NARRATIVE: CASE EVENT DATE: 2013
